FAERS Safety Report 15121555 (Version 1)
Quarter: 2018Q3

REPORT INFORMATION
  Report Type: Spontaneous
  Country: ES (occurrence: ES)
  Receive Date: 20180709
  Receipt Date: 20180709
  Transmission Date: 20181010
  Serious: Yes (Hospitalization, Other)
  Sender: FDA-Public Use
  Company Number: ES-BAYER-2018-127766

PATIENT
  Age: 69 Year
  Sex: Male

DRUGS (1)
  1. ACETYLSALICYLIC ACID (} 100 MG) [Suspect]
     Active Substance: ASPIRIN

REACTIONS (5)
  - Haematemesis [None]
  - Gastrointestinal haemorrhage [None]
  - Gastrointestinal ulcer [None]
  - Anaemia [None]
  - Haemodynamic instability [None]
